FAERS Safety Report 4803653-9 (Version None)
Quarter: 2005Q4

REPORT INFORMATION
  Report Type: 
  Country: None (occurrence: None)
  Receive Date: 20051014
  Receipt Date: 20040910
  Transmission Date: 20060501
  Serious: No
  Sender: FDA-Public Use
  Company Number: 04P-163-0272903-00

PATIENT
  Age: 40 Year
  Sex: Male

DRUGS (3)
  1. KALETRA [Suspect]
     Indication: HIV INFECTION
     Dosage: PER ORAL
     Route: 048
     Dates: start: 20030101
  2. DIDANOSINE [Concomitant]
  3. LAMIVUDINE [Concomitant]

REACTIONS (3)
  - DRUG RESISTANCE [None]
  - T-LYMPHOCYTE COUNT DECREASED [None]
  - VIRAL LOAD INCREASED [None]
